FAERS Safety Report 5627082-3 (Version None)
Quarter: 2008Q1

REPORT INFORMATION
  Report Type: 
  Country: None (occurrence: None)
  Receive Date: 20080124
  Receipt Date: 20070130
  Transmission Date: 20080703
  Serious: Yes (Other)
  Sender: FDA-Public Use
  Company Number: PHEH2006US15186

PATIENT
  Age: 68 Year
  Sex: Male

DRUGS (11)
  1. SANDOSTATIN [Suspect]
     Indication: CARCINOID SYNDROME
     Dosage: 40 MG, QMO, 60 MG, ONCE/SINGLE, INJECTION NOS, 40 MG QMO, INJECTION NOS, INTRAMUSCULAR
     Route: 030
     Dates: start: 20050101, end: 20061101
  2. SANDOSTATIN [Suspect]
     Indication: CARCINOID SYNDROME
     Dosage: 40 MG, QMO, 60 MG, ONCE/SINGLE, INJECTION NOS, 40 MG QMO, INJECTION NOS, INTRAMUSCULAR
     Route: 030
     Dates: start: 20061201, end: 20061201
  3. SANDOSTATIN [Suspect]
     Indication: CARCINOID SYNDROME
     Dosage: 40 MG, QMO, 60 MG, ONCE/SINGLE, INJECTION NOS, 40 MG QMO, INJECTION NOS, INTRAMUSCULAR
     Route: 030
     Dates: start: 20061213
  4. FELODIPINE [Concomitant]
  5. METOPROLOL TARTRATE [Concomitant]
  6. LISINOPRIL [Concomitant]
  7. HYDROCHLOROTHIAZIDE [Concomitant]
  8. ATIVAN [Concomitant]
  9. MULTIVITAMINS (ASCORBIC ACID, ERGOCALCIFEROL, FOLIC ACID, NICOTINAMIDE [Concomitant]
  10. FISH OIL (FISH OIL) [Concomitant]
  11. ASPIRIN [Concomitant]

REACTIONS (4)
  - BLOOD GLUCOSE INCREASED [None]
  - GLYCOSYLATED HAEMOGLOBIN INCREASED [None]
  - HALLUCINATION, VISUAL [None]
  - MUSCULAR WEAKNESS [None]
